FAERS Safety Report 6617401-3 (Version None)
Quarter: 2010Q1

REPORT INFORMATION
  Report Type: 
  Country: None (occurrence: None)
  Receive Date: 20100307
  Receipt Date: 20100204
  Transmission Date: 20100710
  Serious: No
  Sender: FDA-Public Use
  Company Number: US-BAYER-200943378NA

PATIENT
  Age: 54 Year
  Sex: Male

DRUGS (2)
  1. ULTRAVIST 370 [Suspect]
     Indication: ABDOMINAL PAIN
     Dosage: TOTAL DAILY DOSE: 100 ML  UNIT DOSE: 500 ML
     Route: 042
     Dates: start: 20091207, end: 20091207
  2. READI-CAT [Concomitant]
     Dosage: AS USED: 900 ML

REACTIONS (2)
  - NASAL CONGESTION [None]
  - SNEEZING [None]
